FAERS Safety Report 5776978-0 (Version None)
Quarter: 2008Q2

REPORT INFORMATION
  Report Type: 
  Country: None (occurrence: None)
  Receive Date: 20080617
  Receipt Date: 20080617
  Transmission Date: 20081010
  Serious: Yes (Hospitalization)
  Sender: FDA-Public Use
  Company Number: None

PATIENT
  Sex: Male
  Weight: 75 kg

DRUGS (6)
  1. QUETIAPINE FUMARATE [Suspect]
     Indication: AGITATION
     Dosage: 50 MG BID PO
     Route: 048
     Dates: start: 20080228, end: 20080320
  2. QUETIAPINE FUMARATE [Suspect]
     Indication: AGITATION
     Dosage: QHS PO
     Route: 048
     Dates: start: 20080228, end: 20080320
  3. CHLORHEXIDINE GLUCONATE [Concomitant]
  4. DOCUSATE [Concomitant]
  5. SENNA [Concomitant]
  6. GUAIF. [Concomitant]

REACTIONS (2)
  - FUNGAL INFECTION [None]
  - PYREXIA [None]
